FAERS Safety Report 6318596-1 (Version None)
Quarter: 2009Q3

REPORT INFORMATION
  Report Type: 
  Country: None (occurrence: None)
  Receive Date: 20090821
  Receipt Date: 20090814
  Transmission Date: 20100115
  Serious: Yes (Other)
  Sender: FDA-Public Use
  Company Number: PT-ELI_LILLY_AND_COMPANY-PT200908003882

PATIENT
  Sex: Female

DRUGS (3)
  1. HUMALOG [Suspect]
     Dosage: UNK, UNK
     Route: 058
     Dates: start: 20090301, end: 20090101
  2. HUMULIN N [Suspect]
     Dates: end: 20090101
  3. LANTUS [Concomitant]
     Dosage: UNK, UNK
     Dates: start: 20090301, end: 20090101

REACTIONS (3)
  - ERYTHEMA [None]
  - EYE SWELLING [None]
  - FACE OEDEMA [None]
